FAERS Safety Report 8611710-4 (Version None)
Quarter: 2012Q3

REPORT INFORMATION
  Report Type: 
  Country: None (occurrence: None)
  Receive Date: 20120822
  Receipt Date: 20120809
  Transmission Date: 20120928
  Serious: Yes (Hospitalization)
  Sender: FDA-Public Use
  Company Number: FR-ROCHE-1100060

PATIENT
  Sex: Male

DRUGS (16)
  1. VALACICLOVIR HCL [Concomitant]
     Route: 048
  2. LYRICA [Concomitant]
     Route: 048
  3. CYCLOPHOSPHAMIDE [Suspect]
     Indication: BURKITT'S LYMPHOMA
     Route: 042
     Dates: start: 20120521, end: 20120523
  4. BACTRIM DS [Concomitant]
     Route: 048
  5. EMEND [Concomitant]
     Route: 048
  6. ALLOPURINOL [Concomitant]
     Route: 048
  7. MABTHERA [Suspect]
     Indication: BURKITT'S LYMPHOMA
     Route: 042
     Dates: start: 20120519, end: 20120519
  8. DOXORUBICIN HYDROCHLORIDE [Suspect]
     Indication: BURKITT'S LYMPHOMA
     Route: 042
     Dates: start: 20120521, end: 20120521
  9. PREDNISONE TAB [Suspect]
     Indication: BURKITT'S LYMPHOMA
     Route: 048
     Dates: start: 20120520, end: 20120525
  10. CYTARABINE [Concomitant]
     Route: 037
  11. ONDANSETRON HYDROCHLORIDE [Concomitant]
     Route: 042
  12. VINCRISTINE [Suspect]
     Indication: PRODUCT USED FOR UNKNOWN INDICATION
     Route: 042
     Dates: start: 20120520, end: 20120526
  13. NEXIUM [Concomitant]
     Route: 048
  14. LEVOLEUCOVORIN CALCIUM [Suspect]
     Indication: PRODUCT USED FOR UNKNOWN INDICATION
     Route: 042
     Dates: start: 20120521, end: 20120526
  15. METHOTREXATE DISODIUM [Suspect]
     Indication: BURKITT'S LYMPHOMA
     Dates: start: 20120520, end: 20120520
  16. CALCIPARINE [Concomitant]
     Route: 058

REACTIONS (1)
  - RENAL FAILURE ACUTE [None]
